FAERS Safety Report 15473532 (Version 1)
Quarter: 2018Q4

REPORT INFORMATION
  Report Type: Spontaneous
  Country: US (occurrence: US)
  Receive Date: 20181008
  Receipt Date: 20181008
  Transmission Date: 20190205
  Serious: No
  Sender: FDA-Public Use
  Company Number: US-ELI_LILLY_AND_COMPANY-US201809011869

PATIENT
  Sex: Male
  Weight: 123.3 kg

DRUGS (1)
  1. CYMBALTA [Suspect]
     Active Substance: DULOXETINE HYDROCHLORIDE
     Indication: PRODUCT USED FOR UNKNOWN INDICATION
     Dosage: 60 MG, UNKNOWN
     Route: 065

REACTIONS (5)
  - Micturition urgency [Unknown]
  - Renal disorder [Unknown]
  - Bladder irritation [Unknown]
  - Drug ineffective [Recovered/Resolved]
  - Tinnitus [Not Recovered/Not Resolved]
